FAERS Safety Report 9394126 (Version 3)
Quarter: 2013Q3

REPORT INFORMATION
  Report Type: Spontaneous
  Country: IE (occurrence: IE)
  Receive Date: 20130710
  Receipt Date: 20130806
  Transmission Date: 20140515
  Serious: Yes (Other)
  Sender: FDA-Public Use
  Company Number: IE-AMGEN-IRLSP2013047440

PATIENT
  Age: 43 Year
  Sex: Male
  Weight: 69 kg

DRUGS (18)
  1. ARANESP [Suspect]
     Indication: RENAL FAILURE CHRONIC
     Dosage: 70 , QWK
     Route: 042
     Dates: start: 20080131
  2. XANAX [Concomitant]
     Dosage: 0.25 MUG, BID
  3. CATAPRES                           /00171101/ [Concomitant]
     Dosage: 100 MG X 4, TID
  4. TRANSDERM NITRO [Concomitant]
     Dosage: 20 MG, PATCH
  5. DALMANE [Concomitant]
     Dosage: 15 MG, PATCH
  6. TRANDATE [Concomitant]
     Dosage: 200 MG X 4 TID
  7. COZAAR [Concomitant]
     Dosage: 100 MG, QD
  8. FOLIC ACID [Concomitant]
     Dosage: 5 MG, QWK
  9. METOCOR [Concomitant]
     Dosage: 100 MG, BID
  10. TRITACE [Concomitant]
     Dosage: 10 MG, QD
  11. HYDRALAZINE HYDROCHLORIDE [Concomitant]
     Dosage: 25 MG, UNK
  12. CARDURA XL [Concomitant]
     Dosage: 8 MG, BID
  13. ALDOMET                            /00000101/ [Concomitant]
     Dosage: 50 MUG, TID
  14. RENAGEL                            /01459901/ [Concomitant]
  15. ALDACTONE                          /00006201/ [Concomitant]
     Dosage: 50 MG, QD
  16. PHOSPHATE                          /01053101/ [Concomitant]
     Dosage: 0.25 UNK, UNK
     Route: 048
  17. VENOFER [Concomitant]
     Dosage: 100 MG, Q2WK
  18. ADALAT [Concomitant]
     Dosage: UNK

REACTIONS (3)
  - Therapeutic response decreased [Not Recovered/Not Resolved]
  - Nephrectomy [Unknown]
  - Haemoglobin decreased [Unknown]
